FAERS Safety Report 5041475-7 (Version None)
Quarter: 2006Q2

REPORT INFORMATION
  Report Type: 
  Country: None (occurrence: None)
  Receive Date: 20060628
  Receipt Date: 20060606
  Transmission Date: 20061013
  Serious: Yes (Death)
  Sender: FDA-Public Use
  Company Number: US200606001694

PATIENT
  Sex: Male

DRUGS (3)
  1. FORTEO [Suspect]
  2. FORTEO PEN (150MCG/ML) (FORTEO PEN 250MCG/ML) (3ML)) PEN, DISPOSABLE [Concomitant]
  3. CYMBALTA [Suspect]

REACTIONS (1)
  - DEATH [None]
